FAERS Safety Report 10420156 (Version 1)
Quarter: 2014Q3

REPORT INFORMATION
  Report Type: Spontaneous
  Country: US (occurrence: None)
  Receive Date: 20140701
  Receipt Date: 20140701
  Transmission Date: 20150326
  Serious: No
  Sender: FDA-Public Use
  Company Number: 1000067544

PATIENT
  Age: 47 Year
  Sex: Female

DRUGS (4)
  1. DIAZEPAM. [Concomitant]
     Active Substance: DIAZEPAM
  2. EFFEXOR (VENLAFAXINE HYDROCHLORIDE) [Concomitant]
  3. PREMARIN (ESTROGENS CONJUGATED) [Concomitant]
  4. LINZESS [Suspect]
     Active Substance: LINACLOTIDE
     Indication: CONSTIPATION
     Route: 048
     Dates: start: 201403, end: 201403

REACTIONS (2)
  - Accidental overdose [None]
  - Drug ineffective [None]

NARRATIVE: CASE EVENT DATE: 201403
